FAERS Safety Report 19767367 (Version 1)
Quarter: 2021Q3

REPORT INFORMATION
  Report Type: Spontaneous
  Country: US (occurrence: US)
  Receive Date: 20210830
  Receipt Date: 20210830
  Transmission Date: 20211014
  Serious: Yes (Other)
  Sender: FDA-Public Use
  Company Number: None

PATIENT
  Age: 74 Year
  Sex: Female
  Weight: 55.35 kg

DRUGS (12)
  1. PRAMIPEXOLE ER 4.5 MG TABLETS [Suspect]
     Active Substance: PRAMIPEXOLE
     Indication: PARKINSON^S DISEASE
     Dosage: ?          QUANTITY:1 TABLET(S);?
     Route: 048
     Dates: start: 20210628
  2. PRAMIPEXOLE. [Concomitant]
     Active Substance: PRAMIPEXOLE
  3. RESAGILINE [Concomitant]
  4. CARBO?LEVODOPA [Concomitant]
  5. VITAMIN D [Concomitant]
     Active Substance: VITAMIN D NOS
  6. VITAMIN E [Concomitant]
     Active Substance: .ALPHA.-TOCOPHEROL
  7. AMANTIDINE [Concomitant]
     Active Substance: AMANTADINE
  8. METHYL FOLATE [Concomitant]
     Active Substance: LEVOMEFOLATE CALCIUM
  9. RYTARY [Concomitant]
     Active Substance: CARBIDOPA\LEVODOPA
  10. FUNGUS CLEAR [Concomitant]
  11. AMLODIPINE [Concomitant]
     Active Substance: AMLODIPINE BESYLATE
  12. PRIMAL MIND FUEL [Concomitant]

REACTIONS (7)
  - Somnolence [None]
  - Product substitution issue [None]
  - Product packaging issue [None]
  - Product lot number issue [None]
  - Parkinson^s disease [None]
  - Product expiration date issue [None]
  - Suspected product quality issue [None]

NARRATIVE: CASE EVENT DATE: 20210628
